FAERS Safety Report 8479611 (Version 2)
Quarter: 2012Q4

REPORT INFORMATION
  Report Type: 
  Country: US (occurrence: US)
  Receive Date: 20120328
  Receipt Date: 20121015
  Transmission Date: 20130627
  Serious: Yes (Other)
  Sender: FDA-Public Use
  Company Number: US-US-EMD SERONO, INC.-7120561

PATIENT
  Sex: Male
  Weight: 124 kg

DRUGS (5)
  1. REBIF [Suspect]
     Indication: MULTIPLE SCLEROSIS
     Route: 058
     Dates: start: 20120124, end: 201202
  2. REBIF [Suspect]
     Route: 058
     Dates: end: 20120815
  3. OMEPRAZOLE [Concomitant]
     Indication: GASTROOESOPHAGEAL REFLUX DISEASE
     Dates: start: 2010
  4. PROVIGIL [Concomitant]
     Indication: MALAISE
     Dates: start: 201106
  5. PROVIGIL [Concomitant]
     Indication: FATIGUE

REACTIONS (6)
  - Lower respiratory tract infection [Unknown]
  - Influenza [Unknown]
  - Hypersensitivity [Unknown]
  - Hangover [Recovering/Resolving]
  - Headache [Recovering/Resolving]
  - Injection site pain [Not Recovered/Not Resolved]
